FAERS Safety Report 25195825 (Version 2)
Quarter: 2025Q2

REPORT INFORMATION
  Report Type: Spontaneous
  Country: US (occurrence: US)
  Receive Date: 20250415
  Receipt Date: 20250416
  Transmission Date: 20250717
  Serious: No
  Sender: SANOFI AVENTIS
  Company Number: US-SA-2025SA105341

PATIENT
  Age: 50 Year
  Sex: Male
  Weight: 90.71 kg

DRUGS (6)
  1. DUPIXENT [Suspect]
     Active Substance: DUPILUMAB
     Indication: Chronic rhinosinusitis with nasal polyps
     Dosage: 300 MG, QOW
     Route: 058
     Dates: start: 202102
  2. PREVACID [Concomitant]
     Active Substance: LANSOPRAZOLE
  3. VITAMIN C [Concomitant]
     Active Substance: ASCORBIC ACID
  4. VITAMIN D [Concomitant]
     Active Substance: VITAMIN D NOS
  5. ZINC [Concomitant]
     Active Substance: ZINC
  6. CLARITIN-D NOS [Concomitant]
     Active Substance: LORATADINE\PSEUDOEPHEDRINE SULFATE
     Dosage: CLARITIN-D 12 HOUR

REACTIONS (2)
  - Oropharyngeal discomfort [Unknown]
  - Speech disorder [Unknown]
